FAERS Safety Report 24591119 (Version 2)
Quarter: 2024Q4

REPORT INFORMATION
  Report Type: Spontaneous
  Country: US (occurrence: US)
  Receive Date: 20241107
  Receipt Date: 20241211
  Transmission Date: 20250115
  Serious: Yes (Other)
  Sender: SANOFI AVENTIS
  Company Number: US-SA-2024SA317745

PATIENT
  Age: 10 Year
  Sex: Male

DRUGS (1)
  1. DUPILUMAB [Suspect]
     Active Substance: DUPILUMAB
     Indication: Dermatitis atopic
     Dosage: 200 MG, QOW

REACTIONS (9)
  - Uveitis [Recovering/Resolving]
  - Conjunctival hyperaemia [Recovering/Resolving]
  - Photophobia [Recovering/Resolving]
  - Retinal vasculitis [Recovering/Resolving]
  - Nodule [Recovering/Resolving]
  - Capillary leak syndrome [Recovering/Resolving]
  - Retinal haemorrhage [Recovering/Resolving]
  - Eye pain [Recovering/Resolving]
  - Chorioretinal scar [Recovering/Resolving]
